FAERS Safety Report 19481214 (Version 5)
Quarter: 2021Q4

REPORT INFORMATION
  Report Type: Other
  Country: LB (occurrence: LB)
  Receive Date: 20210701
  Receipt Date: 20211025
  Transmission Date: 20220303
  Serious: Yes (Death, Hospitalization, Other)
  Sender: FDA-Public Use
  Company Number: LB-ROCHE-2855742

PATIENT
  Sex: Male

DRUGS (1)
  1. TECENTRIQ [Suspect]
     Active Substance: ATEZOLIZUMAB
     Indication: Small cell lung cancer
     Route: 041
     Dates: start: 20210317

REACTIONS (7)
  - Metastases to central nervous system [Not Recovered/Not Resolved]
  - Pneumothorax [Recovering/Resolving]
  - Subcutaneous emphysema [Unknown]
  - Hyponatraemia [Recovered/Resolved]
  - Gait inability [Unknown]
  - Speech disorder [Unknown]
  - Death [Fatal]

NARRATIVE: CASE EVENT DATE: 20210601
